FAERS Safety Report 4470897-8 (Version None)
Quarter: 2004Q4

REPORT INFORMATION
  Report Type: 
  Country: None (occurrence: None)
  Receive Date: 20041011
  Receipt Date: 20040930
  Transmission Date: 20050328
  Serious: Yes (Hospitalization)
  Sender: FDA-Public Use
  Company Number: AU-BRISTOL-MYERS SQUIBB COMPANY-12717146

PATIENT
  Sex: Female

DRUGS (1)
  1. AVAPRO [Suspect]
     Indication: HYPERTENSION
     Dosage: ON 150MG DAILY AS OF JAN-2004; INCREASED TO 300MG.
     Route: 048
     Dates: start: 20040101, end: 20040101

REACTIONS (5)
  - ABDOMINAL DISTENSION [None]
  - FLUID RETENTION [None]
  - HYPERTENSION [None]
  - SOMNOLENCE [None]
  - URINARY RETENTION [None]
